FAERS Safety Report 22357009 (Version 2)
Quarter: 2023Q2

REPORT INFORMATION
  Report Type: Report from Study
  Country: US (occurrence: US)
  Receive Date: 20230523
  Receipt Date: 20230526
  Transmission Date: 20230721
  Serious: Yes (Hospitalization, Other)
  Sender: FDA-Public Use
  Company Number: US-ALXN-A202302304

PATIENT
  Sex: Female

DRUGS (3)
  1. BACTRIM [Suspect]
     Active Substance: SULFAMETHOXAZOLE\TRIMETHOPRIM
     Indication: Urinary incontinence
     Dosage: UNK
     Route: 065
  2. BACTRIM [Suspect]
     Active Substance: SULFAMETHOXAZOLE\TRIMETHOPRIM
     Indication: Cystitis
  3. ULTOMIRIS [Suspect]
     Active Substance: RAVULIZUMAB-CWVZ
     Indication: Myasthenia gravis
     Dosage: UNK
     Route: 065

REACTIONS (13)
  - Tremor [Unknown]
  - Scleroderma [Unknown]
  - Sjogren^s syndrome [Unknown]
  - Vomiting [Not Recovered/Not Resolved]
  - Anal incontinence [Unknown]
  - Urinary incontinence [Not Recovered/Not Resolved]
  - Gastrointestinal motility disorder [Unknown]
  - Cystitis [Not Recovered/Not Resolved]
  - Blood pressure abnormal [Unknown]
  - Oxygen saturation decreased [Unknown]
  - Fibromyalgia [Unknown]
  - Weight increased [Unknown]
  - Drug hypersensitivity [Unknown]
